FAERS Safety Report 19894327 (Version 1)
Quarter: 2021Q3

REPORT INFORMATION
  Report Type: Spontaneous
  Country: US (occurrence: US)
  Receive Date: 20210928
  Receipt Date: 20210928
  Transmission Date: 20211014
  Serious: No
  Sender: FDA-Public Use
  Company Number: None

PATIENT
  Age: 58 Year
  Sex: Female
  Weight: 63 kg

DRUGS (11)
  1. HYDROCODONE?ACETAMINOPHEN 5?325MG [Concomitant]
     Active Substance: ACETAMINOPHEN\HYDROCODONE BITARTRATE
  2. VOLTAREN [Concomitant]
     Active Substance: DICLOFENAC SODIUM
  3. LETROZOLE 2.5MG [Concomitant]
     Active Substance: LETROZOLE
  4. WELLBUTRIN XL [Concomitant]
     Active Substance: BUPROPION HYDROCHLORIDE
  5. RESTASIS [Concomitant]
     Active Substance: CYCLOSPORINE
  6. FISH OIL 1200MG [Concomitant]
  7. IBRANCE [Suspect]
     Active Substance: PALBOCICLIB
     Indication: BREAST CANCER
     Dosage: ?          OTHER FREQUENCY:QD FOR 21/28 DAYS;?
     Route: 048
     Dates: start: 20210225
  8. AMPHETAMINE?DEXTROAMPHETAMINE 25MG [Concomitant]
  9. CYMBALTA [Concomitant]
     Active Substance: DULOXETINE HYDROCHLORIDE
  10. TYLENOL [Concomitant]
     Active Substance: ACETAMINOPHEN
  11. BONIVA 150MG [Concomitant]

REACTIONS (2)
  - Feeling abnormal [None]
  - Nausea [None]

NARRATIVE: CASE EVENT DATE: 20210928
